FAERS Safety Report 7465090-0 (Version None)
Quarter: 2011Q2

REPORT INFORMATION
  Report Type: 
  Country: None (occurrence: None)
  Receive Date: 20110509
  Receipt Date: 20110425
  Transmission Date: 20111010
  Serious: Yes (Hospitalization, Other)
  Sender: FDA-Public Use
  Company Number: JP-JNJFOC-20110410491

PATIENT
  Sex: Female

DRUGS (73)
  1. NEUTROGIN [Suspect]
     Route: 058
  2. TAXOTERE [Suspect]
     Route: 065
  3. LEVOTHYROXINE SODIUM [Suspect]
     Route: 065
  4. ALFAROL [Suspect]
     Indication: PRODUCT USED FOR UNKNOWN INDICATION
     Route: 065
  5. BIO THREE [Suspect]
     Route: 065
  6. LOXONIN [Suspect]
     Indication: PRODUCT USED FOR UNKNOWN INDICATION
     Route: 065
  7. LOXONIN [Suspect]
     Route: 065
  8. LEVOGLUTAMIDE [Suspect]
     Route: 065
  9. LEVOGLUTAMIDE [Suspect]
     Route: 065
  10. NATEGLINIDE [Suspect]
     Indication: PRODUCT USED FOR UNKNOWN INDICATION
     Route: 065
  11. CYCLOPHOSPHAMIDE [Suspect]
     Route: 065
  12. NEO-MERCAZOLE TAB [Suspect]
     Indication: PRODUCT USED FOR UNKNOWN INDICATION
     Route: 065
  13. LEVOTHYROXINE SODIUM [Suspect]
     Route: 065
  14. BISOPROLOL FUMARATE [Suspect]
     Route: 065
  15. GABAPENTIN [Suspect]
     Indication: PRODUCT USED FOR UNKNOWN INDICATION
     Route: 065
  16. MEROPENEM [Suspect]
     Indication: PRODUCT USED FOR UNKNOWN INDICATION
     Route: 065
  17. CALCIUM LACTATE [Suspect]
     Route: 065
  18. ASPARA K [Suspect]
     Route: 065
  19. LOXONIN [Suspect]
     Route: 065
  20. LEVOGLUTAMIDE [Suspect]
     Route: 065
  21. LEVOGLUTAMIDE [Suspect]
     Route: 065
  22. GUAIAZULENE [Suspect]
     Indication: PRODUCT USED FOR UNKNOWN INDICATION
     Route: 065
  23. LEVOTHYROXINE SODIUM [Suspect]
     Indication: PRODUCT USED FOR UNKNOWN INDICATION
     Route: 065
  24. BISOPROLOL FUMARATE [Suspect]
     Indication: PRODUCT USED FOR UNKNOWN INDICATION
     Route: 065
  25. SERENAL [Suspect]
     Indication: PRODUCT USED FOR UNKNOWN INDICATION
     Route: 065
  26. ASPARA K [Suspect]
     Indication: PRODUCT USED FOR UNKNOWN INDICATION
     Route: 065
  27. DECADRON [Suspect]
     Route: 065
  28. LEVOGLUTAMIDE [Suspect]
     Indication: PRODUCT USED FOR UNKNOWN INDICATION
     Route: 065
  29. LEVOGLUTAMIDE [Suspect]
     Route: 065
  30. NEUTROGIN [Suspect]
     Route: 058
  31. ALFAROL [Suspect]
     Route: 065
  32. TRASTUZUMAB [Suspect]
     Indication: BREAST CANCER
     Route: 065
  33. CALCIUM LACTATE [Suspect]
     Indication: PRODUCT USED FOR UNKNOWN INDICATION
     Route: 065
  34. LOXONIN [Suspect]
     Route: 065
  35. LEVOGLUTAMIDE [Suspect]
     Route: 065
  36. LEVOFLOXACIN [Suspect]
     Indication: PRODUCT USED FOR UNKNOWN INDICATION
     Route: 065
  37. TAXOTERE [Suspect]
     Route: 065
  38. LEVOTHYROXINE SODIUM [Suspect]
     Route: 065
  39. ZOFRAN [Suspect]
     Route: 065
  40. TRASTUZUMAB [Suspect]
     Route: 065
  41. HACHIAZULE [Suspect]
     Indication: PRODUCT USED FOR UNKNOWN INDICATION
     Route: 065
  42. LOXONIN [Suspect]
     Route: 065
  43. LOXONIN [Suspect]
     Route: 065
  44. LOXONIN [Suspect]
     Route: 065
  45. VOLTAREN [Suspect]
     Indication: PRODUCT USED FOR UNKNOWN INDICATION
     Route: 065
  46. LEVOFLOXACIN [Suspect]
     Route: 065
  47. CYCLOPHOSPHAMIDE [Suspect]
     Indication: BREAST CANCER
     Route: 065
  48. GABAPENTIN [Suspect]
     Route: 065
  49. BIO THREE [Suspect]
     Route: 065
  50. BIO THREE [Suspect]
     Route: 065
  51. BIO THREE [Suspect]
     Route: 065
  52. SERENAL [Suspect]
     Route: 065
  53. ASPARA K [Suspect]
     Route: 065
  54. DECADRON [Suspect]
     Indication: PRODUCT USED FOR UNKNOWN INDICATION
     Route: 065
  55. LOXONIN [Suspect]
     Route: 065
  56. LEVOFLOXACIN [Suspect]
     Route: 065
  57. NEUTROGIN [Suspect]
     Indication: FEBRILE NEUTROPENIA
     Route: 058
  58. CYCLOPHOSPHAMIDE [Suspect]
     Route: 065
  59. BIO THREE [Suspect]
     Route: 065
  60. OXAZEPAM [Suspect]
     Route: 065
  61. ASPARA K [Suspect]
     Route: 065
  62. DECADRON [Suspect]
     Route: 065
  63. LOPERAMIDE HCL [Suspect]
     Indication: PRODUCT USED FOR UNKNOWN INDICATION
     Route: 065
  64. NEUTROGIN [Suspect]
     Route: 058
  65. TAXOTERE [Suspect]
     Indication: BREAST CANCER
     Route: 065
  66. TAXOTERE [Suspect]
     Route: 065
  67. CYCLOPHOSPHAMIDE [Suspect]
     Route: 065
  68. ZOFRAN [Suspect]
     Indication: PRODUCT USED FOR UNKNOWN INDICATION
     Route: 065
  69. BIO THREE [Suspect]
     Indication: PRODUCT USED FOR UNKNOWN INDICATION
     Route: 065
  70. OXAZEPAM [Suspect]
     Route: 065
  71. DECADRON [Suspect]
     Route: 065
  72. LEVOGLUTAMIDE [Suspect]
     Route: 065
  73. NICARDIPINE HYDROCHLORIDE [Suspect]
     Indication: PRODUCT USED FOR UNKNOWN INDICATION
     Route: 065

REACTIONS (5)
  - RHEUMATOID ARTHRITIS [None]
  - FEBRILE NEUTROPENIA [None]
  - WHITE BLOOD CELL COUNT DECREASED [None]
  - BRONCHITIS [None]
  - INTERSTITIAL LUNG DISEASE [None]
